FAERS Safety Report 4803842-3 (Version None)
Quarter: 2005Q4

REPORT INFORMATION
  Report Type: 
  Country: None (occurrence: None)
  Receive Date: 20051019
  Receipt Date: 20051011
  Transmission Date: 20060501
  Serious: Yes (Hospitalization)
  Sender: FDA-Public Use
  Company Number: NO-MERCK-0510NOR00022

PATIENT
  Age: 52 Year
  Sex: Female

DRUGS (5)
  1. VIOXX [Suspect]
     Indication: BACK PAIN
     Route: 048
     Dates: start: 20020620, end: 20041001
  2. ACETAMINOPHEN AND CODEINE PHOSPHATE [Concomitant]
     Indication: PAIN
     Route: 065
  3. IBUPROFEN [Concomitant]
     Route: 065
  4. ZOPICLONE [Concomitant]
     Route: 065
  5. ESTRADIOL AND NORETHINDRONE ACETATE [Concomitant]
     Route: 065

REACTIONS (4)
  - HEADACHE [None]
  - INTRACRANIAL VENOUS SINUS THROMBOSIS [None]
  - TINNITUS [None]
  - VISUAL DISTURBANCE [None]
